FAERS Safety Report 12562221 (Version 1)
Quarter: 2016Q3

REPORT INFORMATION
  Report Type: Spontaneous
  Country: DE (occurrence: DE)
  Receive Date: 20160715
  Receipt Date: 20160715
  Transmission Date: 20161109
  Serious: Yes (Congenital Anomaly, Other)
  Sender: FDA-Public Use
  Company Number: DE-WATSON-2016-15596

PATIENT
  Sex: Female
  Weight: .57 kg

DRUGS (3)
  1. THYROXIN [Concomitant]
     Active Substance: LEVOTHYROXINE
     Indication: HYPOTHYROIDISM
     Dosage: UNK
     Route: 064
  2. NOVOTHYRAL [Concomitant]
     Active Substance: LEVOTHYROXINE SODIUM\LIOTHYRONINE SODIUM
     Indication: HYPOTHYROIDISM
     Dosage: UNK
     Route: 064
  3. VALSARTAN (UNKNOWN) [Suspect]
     Active Substance: VALSARTAN
     Indication: HYPERTENSION
     Dosage: UNK
     Route: 064
     Dates: start: 20150819, end: 20160121

REACTIONS (5)
  - Limb hypoplasia congenital [Not Recovered/Not Resolved]
  - Foetal exposure during pregnancy [Not Recovered/Not Resolved]
  - Low set ears [Not Recovered/Not Resolved]
  - Kidney malrotation [Not Recovered/Not Resolved]
  - Retrognathia [Not Recovered/Not Resolved]
